FAERS Safety Report 8720413 (Version 2)
Quarter: 2012Q4

REPORT INFORMATION
  Report Type: 
  Country: JP (occurrence: JP)
  Receive Date: 20120813
  Receipt Date: 20121210
  Transmission Date: 20130627
  Serious: Yes (Death, Other)
  Sender: FDA-Public Use
  Company Number: JP-ROCHE-1083298

PATIENT
  Age: 64 None
  Sex: Male
  Weight: 52 kg

DRUGS (14)
  1. AVASTIN [Suspect]
     Indication: LUNG ADENOCARCINOMA METASTATIC
     Route: 041
     Dates: start: 20111004, end: 20111115
  2. CISPLATIN [Concomitant]
     Indication: LUNG ADENOCARCINOMA METASTATIC
     Route: 041
     Dates: start: 20110911, end: 20111115
  3. ALIMTA [Concomitant]
     Indication: LUNG ADENOCARCINOMA METASTATIC
     Route: 041
     Dates: start: 20110911, end: 20111115
  4. ALOXI [Concomitant]
     Indication: PROPHYLAXIS OF NAUSEA AND VOMITING
     Route: 041
     Dates: start: 20111004, end: 20111115
  5. EMEND [Concomitant]
     Indication: PROPHYLAXIS OF NAUSEA AND VOMITING
     Route: 048
     Dates: start: 20111004, end: 20111115
  6. EMEND [Concomitant]
     Route: 048
     Dates: start: 20111005, end: 20111117
  7. LOXOPROFEN SODIUM [Concomitant]
     Indication: PAIN
     Route: 048
     Dates: start: 20111004, end: 20111203
  8. CYTOTEC [Concomitant]
     Indication: PROPHYLAXIS AGAINST GASTROINTESTINAL ULCER
     Route: 048
     Dates: start: 20111004, end: 20111203
  9. PANVITAN [Concomitant]
     Indication: PROPHYLAXIS
     Route: 048
     Dates: start: 20110909, end: 20111203
  10. OXYCONTIN [Concomitant]
     Indication: PAIN
     Dosage: 5mg to 20mg
     Route: 048
     Dates: start: 20111025, end: 20111203
  11. DEXART [Concomitant]
     Indication: PROPHYLAXIS OF NAUSEA AND VOMITING
     Route: 041
     Dates: start: 20111004, end: 20111117
  12. FAMOTIDINE D [Concomitant]
     Route: 048
     Dates: end: 20111203
  13. ADALAT CR [Concomitant]
     Indication: HYPERTENSION
     Route: 048
     Dates: end: 20111203
  14. OLMETEC [Concomitant]
     Indication: HYPERTENSION
     Route: 048
     Dates: end: 20111203

REACTIONS (2)
  - Peritonitis [Fatal]
  - Gastrointestinal perforation [Recovered/Resolved]
